FAERS Safety Report 17494213 (Version 1)
Quarter: 2020Q1

REPORT INFORMATION
  Report Type: Spontaneous
  Country: US (occurrence: US)
  Receive Date: 20200304
  Receipt Date: 20200304
  Transmission Date: 20200409
  Serious: Yes (Death, Hospitalization, Other)
  Sender: FDA-Public Use
  Company Number: US-GLAXOSMITHKLINE-US2020GSK037589

PATIENT
  Sex: Female

DRUGS (6)
  1. PREVACID [Suspect]
     Active Substance: LANSOPRAZOLE
     Indication: GASTROOESOPHAGEAL REFLUX DISEASE
     Dosage: UNK
     Route: 065
     Dates: start: 2008, end: 2016
  2. PANTOPRAZOLE [Suspect]
     Active Substance: PANTOPRAZOLE
     Indication: MASS
  3. OMEPRAZOLE. [Suspect]
     Active Substance: OMEPRAZOLE
     Dosage: 20 MG, BID
     Route: 048
  4. PANTOPRAZOLE [Suspect]
     Active Substance: PANTOPRAZOLE
     Indication: GASTROINTESTINAL HAEMORRHAGE
  5. OMEPRAZOLE. [Suspect]
     Active Substance: OMEPRAZOLE
     Indication: GASTROOESOPHAGEAL REFLUX DISEASE
     Dosage: 20 MG, QD
     Route: 048
     Dates: start: 20111223, end: 20160316
  6. PANTOPRAZOLE [Suspect]
     Active Substance: PANTOPRAZOLE
     Indication: GASTRIC DISORDER
     Dosage: 40 MG, BID
     Route: 048

REACTIONS (29)
  - Vomiting [Unknown]
  - Abdominal discomfort [Unknown]
  - Gastric neoplasm [Unknown]
  - Gastrectomy [Unknown]
  - Gastric dilatation [Unknown]
  - Upper gastrointestinal haemorrhage [Unknown]
  - Abdominal pain [Unknown]
  - Gastroenterostomy [Unknown]
  - Gastrooesophageal reflux disease [Unknown]
  - Abdominal pain upper [Unknown]
  - Stomach mass [Unknown]
  - Constipation [Unknown]
  - Haematemesis [Unknown]
  - Gastritis [Unknown]
  - Abdominal distension [Unknown]
  - Nausea [Unknown]
  - Oesophageal carcinoma [Unknown]
  - Oesophageal stenosis [Unknown]
  - Adenocarcinoma gastric [Unknown]
  - Gastrointestinal haemorrhage [Unknown]
  - Abdominal tenderness [Unknown]
  - Weight decreased [Unknown]
  - Oesophageal mass [Unknown]
  - Diverticulum intestinal [Unknown]
  - Chronic gastritis [Unknown]
  - Oesophageal cancer metastatic [Fatal]
  - Gastric cancer [Unknown]
  - Obstruction gastric [Unknown]
  - Dyspepsia [Unknown]
